FAERS Safety Report 24836603 (Version 1)
Quarter: 2025Q1

REPORT INFORMATION
  Report Type: Report from Study
  Country: US (occurrence: US)
  Receive Date: 20250113
  Receipt Date: 20250113
  Transmission Date: 20250409
  Serious: Yes (Other)
  Sender: BAYER HEALTHCARE PHARMACEUTICALS INC.
  Company Number: US-BAYER-2025A003408

PATIENT
  Age: 64 Year
  Sex: Male

DRUGS (1)
  1. KERENDIA [Suspect]
     Active Substance: FINERENONE
     Dosage: 10 MG, QD
     Route: 048
     Dates: start: 20240607, end: 20241220

REACTIONS (2)
  - Renal function test abnormal [Unknown]
  - Product administration interrupted [None]

NARRATIVE: CASE EVENT DATE: 20241201
